FAERS Safety Report 5673682-4 (Version None)
Quarter: 2008Q1

REPORT INFORMATION
  Report Type: 
  Country: None (occurrence: None)
  Receive Date: 20080319
  Receipt Date: 20080312
  Transmission Date: 20080703
  Serious: Yes (Other)
  Sender: FDA-Public Use
  Company Number: FI-ABBOTT-08P-055-0442379-00

PATIENT
  Sex: Female

DRUGS (5)
  1. HUMIRA [Suspect]
     Indication: RHEUMATOID ARTHRITIS
     Route: 058
     Dates: start: 20060605, end: 20060816
  2. LEFLUNOMIDE [Concomitant]
     Indication: RHEUMATOID ARTHRITIS
     Route: 048
  3. BISOPROLOL FUMARATE [Concomitant]
     Indication: BLOOD PRESSURE
  4. HYDROCHLOROTHIAZIDE [Concomitant]
     Indication: BLOOD PRESSURE
  5. ANACIN [Concomitant]
     Indication: ANALGESIA

REACTIONS (3)
  - DEMYELINATION [None]
  - DIPLOPIA [None]
  - INCREASED TENDENCY TO BRUISE [None]
